FAERS Safety Report 7369320-5 (Version None)
Quarter: 2011Q1

REPORT INFORMATION
  Report Type: 
  Country: None (occurrence: None)
  Receive Date: 20110323
  Receipt Date: 20110315
  Transmission Date: 20110831
  Serious: Yes (Other)
  Sender: FDA-Public Use
  Company Number: B0706161A

PATIENT
  Age: 36 Year
  Sex: Female

DRUGS (1)
  1. PAROXETINE HYDROCHLORIDE [Suspect]
     Indication: ANXIETY
     Route: 048

REACTIONS (1)
  - ELECTROCARDIOGRAM QT PROLONGED [None]
